FAERS Safety Report 5821211-4 (Version None)
Quarter: 2008Q3

REPORT INFORMATION
  Report Type: 
  Country: None (occurrence: None)
  Receive Date: 20080724
  Receipt Date: 20080716
  Transmission Date: 20090109
  Serious: Yes (Hospitalization)
  Sender: FDA-Public Use
  Company Number: US-ABBOTT-08P-163-0463054-00

PATIENT
  Sex: Male
  Weight: 97.61 kg

DRUGS (7)
  1. DEPAKOTE [Suspect]
     Indication: CONVULSION
     Route: 048
  2. DEPAKOTE [Suspect]
     Route: 048
     Dates: start: 20070401
  3. LAMOTRIGINE [Suspect]
     Indication: CONVULSION
     Route: 048
  4. ATENOLOL [Concomitant]
     Indication: HYPERTENSION
     Route: 048
  5. METFORMIN [Concomitant]
     Indication: BLOOD GLUCOSE
     Route: 048
  6. ESOMEPRAZOLE MAGNESIUM [Concomitant]
     Indication: DRUG USE FOR UNKNOWN INDICATION
     Route: 048
  7. QUETIAPINE FUMARATE [Concomitant]
     Indication: DRUG USE FOR UNKNOWN INDICATION
     Route: 048

REACTIONS (9)
  - ABNORMAL BEHAVIOUR [None]
  - AGGRESSION [None]
  - DIZZINESS [None]
  - DYSURIA [None]
  - HALLUCINATION [None]
  - HEADACHE [None]
  - PATIENT RESTRAINT [None]
  - SELF INJURIOUS BEHAVIOUR [None]
  - SOMNOLENCE [None]
